FAERS Safety Report 22018138 (Version 3)
Quarter: 2023Q1

REPORT INFORMATION
  Report Type: Spontaneous
  Country: JP (occurrence: JP)
  Receive Date: 20230221
  Receipt Date: 20230308
  Transmission Date: 20230417
  Serious: Yes (Other)
  Sender: FDA-Public Use
  Company Number: JP-MSD-M2023-06830

PATIENT
  Age: 68 Year
  Sex: Female

DRUGS (1)
  1. LAGEVRIO [Suspect]
     Active Substance: MOLNUPIRAVIR
     Indication: COVID-19 treatment
     Dosage: 800 MILLIGRAM, BID
     Route: 048
     Dates: start: 20221201, end: 20221205

REACTIONS (6)
  - Lymphoma [Unknown]
  - Toxic skin eruption [Unknown]
  - Feeling hot [Unknown]
  - Pain in extremity [Unknown]
  - Pruritus [Unknown]
  - Skin mass [Unknown]

NARRATIVE: CASE EVENT DATE: 20221203
